FAERS Safety Report 7272657-1 (Version None)
Quarter: 2010Q4

REPORT INFORMATION
  Report Type: 
  Country: None (occurrence: None)
  Receive Date: 20101214
  Receipt Date: 20090615
  Transmission Date: 20110411
  Serious: Yes (Other)
  Sender: FDA-Public Use
  Company Number: US-SEPTODONT-200900341

PATIENT
  Sex: Female

DRUGS (1)
  1. SEPTOCAINE [Suspect]
     Indication: LOCAL ANAESTHESIA
     Dosage: DENTAL
     Route: 004

REACTIONS (1)
  - SWELLING [None]
